FAERS Safety Report 4961093-6 (Version None)
Quarter: 2006Q1

REPORT INFORMATION
  Report Type: 
  Country: None (occurrence: None)
  Receive Date: 20060201
  Receipt Date: 20051023
  Transmission Date: 20060701
  Serious: No
  Sender: FDA-Public Use
  Company Number: 2005PV004269

PATIENT
  Age: 45 Year
  Sex: Female
  Weight: 154.223 kg

DRUGS (2)
  1. BYETTA [Suspect]
     Indication: OVERWEIGHT
     Dosage: 5 MCG, BID, SC
     Route: 058
     Dates: start: 20051018
  2. NEXIUM [Concomitant]

REACTIONS (7)
  - ASTHENIA [None]
  - HEART RATE INCREASED [None]
  - HYPOGLYCAEMIA [None]
  - NOCTURIA [None]
  - POLLAKIURIA [None]
  - TINNITUS [None]
  - TREMOR [None]
